FAERS Safety Report 15614761 (Version 1)
Quarter: 2018Q4

REPORT INFORMATION
  Report Type: Spontaneous
  Country: FR (occurrence: FR)
  Receive Date: 20181113
  Receipt Date: 20181113
  Transmission Date: 20190205
  Serious: Yes (Congenital Anomaly)
  Sender: FDA-Public Use
  Company Number: FR-UCBSA-2018050449

PATIENT
  Sex: Male

DRUGS (4)
  1. OXAZEPAM. [Suspect]
     Active Substance: OXAZEPAM
     Indication: PRODUCT USED FOR UNKNOWN INDICATION
     Dosage: 10 MG, ONCE DAILY (QD)
     Route: 064
     Dates: start: 20180629, end: 20180706
  2. KEPPRA [Suspect]
     Active Substance: LEVETIRACETAM
     Indication: PRODUCT USED FOR UNKNOWN INDICATION
     Dosage: 3.5 G, ONCE DAILY (QD)
     Route: 064
     Dates: start: 20171023, end: 20180706
  3. PAROXETINE HYDROCHLORIDE. [Suspect]
     Active Substance: PAROXETINE HYDROCHLORIDE
     Indication: PRODUCT USED FOR UNKNOWN INDICATION
     Dosage: 20 MG, ONCE DAILY (QD)
     Route: 064
     Dates: start: 20180502, end: 20180706
  4. URBANYL [Suspect]
     Active Substance: CLOBAZAM
     Indication: PRODUCT USED FOR UNKNOWN INDICATION
     Dosage: 10-20 MG, ONCE DAILY (QD)
     Route: 064
     Dates: start: 20180502, end: 20180629

REACTIONS (2)
  - Foetal exposure during pregnancy [Unknown]
  - Hamartoma [Recovered/Resolved]

NARRATIVE: CASE EVENT DATE: 20171023
